FAERS Safety Report 10557832 (Version 1)
Quarter: 2014Q4

REPORT INFORMATION
  Report Type: Spontaneous
  Country: RU (occurrence: None)
  Receive Date: 20141029
  Receipt Date: 20141029
  Transmission Date: 20150529
  Serious: Yes (Other)
  Sender: FDA-Public Use
  Company Number: B1007377A

PATIENT
  Sex: Female

DRUGS (4)
  1. KALETRA [Suspect]
     Active Substance: LOPINAVIR\RITONAVIR
     Indication: HIV INFECTION
     Dates: start: 201401
  2. BISEPTOL(SULFAMETHOXAZOLE +TRIMETHOPRIM) [Concomitant]
  3. ISONIAZID. [Suspect]
     Active Substance: ISONIAZID
  4. COMBIVIR [Suspect]
     Active Substance: LAMIVUDINE\ZIDOVUDINE
     Indication: HIV INFECTION
     Dates: start: 201401

REACTIONS (7)
  - Abdominal distension [None]
  - Ulnar neuritis [None]
  - Pancreatitis [None]
  - Arthralgia [None]
  - Peripheral swelling [None]
  - Drug ineffective [None]
  - Transaminases increased [None]

NARRATIVE: CASE EVENT DATE: 201402
